FAERS Safety Report 4567428-0 (Version None)
Quarter: 2005Q1

REPORT INFORMATION
  Report Type: 
  Country: None (occurrence: None)
  Receive Date: 20050127
  Receipt Date: 20050114
  Transmission Date: 20050727
  Serious: Yes (Hospitalization, Other)
  Sender: FDA-Public Use
  Company Number: HQWYE636614JAN05

PATIENT
  Age: 80 Year
  Sex: Female

DRUGS (1)
  1. PANTOZOL                    (PANTOPRAZOLE) [Suspect]
     Dosage: 40 MG 1X PER DAY
     Route: 048
     Dates: start: 20040903, end: 20040920

REACTIONS (3)
  - HAEMOGLOBIN DECREASED [None]
  - HEPATIC FAILURE [None]
  - HEPATITIS TOXIC [None]
